FAERS Safety Report 7082630-4 (Version None)
Quarter: 2010Q4

REPORT INFORMATION
  Report Type: 
  Country: None (occurrence: None)
  Receive Date: 20101104
  Receipt Date: 20101026
  Transmission Date: 20110411
  Serious: Yes (Other)
  Sender: FDA-Public Use
  Company Number: AU-JNJFOC-20101100010

PATIENT
  Age: 11 Year
  Sex: Male

DRUGS (3)
  1. CONCERTA [Suspect]
     Indication: ILL-DEFINED DISORDER
     Route: 048
  2. CONCERTA [Suspect]
     Route: 048
  3. RITALIN [Suspect]
     Indication: ILL-DEFINED DISORDER
     Route: 065

REACTIONS (1)
  - TARDIVE DYSKINESIA [None]
